FAERS Safety Report 9145760 (Version 2)
Quarter: 2013Q1

REPORT INFORMATION
  Report Type: Spontaneous
  Country: BR (occurrence: BR)
  Receive Date: 20130307
  Receipt Date: 20130312
  Transmission Date: 20140127
  Serious: Yes (Other)
  Sender: FDA-Public Use
  Company Number: PHHY2013BR021574

PATIENT
  Sex: Female
  Weight: 71 kg

DRUGS (4)
  1. FORASEQ [Suspect]
     Indication: ASTHMA
     Dosage: 1 DF, BID
  2. MIFLONIDE [Suspect]
     Indication: ASTHMA
     Dosage: 400 UG, UNK
  3. PROTOS (STRONTIUM RANELATE) [Concomitant]
     Dosage: UNK UKN, UNK
  4. LOSARTAN [Concomitant]
     Dosage: UNK UKN, UNK

REACTIONS (3)
  - Depression [Recovered/Resolved]
  - Dyspnoea [Recovering/Resolving]
  - Drug ineffective [Unknown]
